FAERS Safety Report 17985905 (Version 2)
Quarter: 2020Q3

REPORT INFORMATION
  Report Type: Spontaneous
  Country: US (occurrence: US)
  Receive Date: 20200707
  Receipt Date: 20200820
  Transmission Date: 20201103
  Serious: Yes (Other)
  Sender: FDA-Public Use
  Company Number: US-AMGEN-USASP2020104861

PATIENT
  Sex: Female

DRUGS (1)
  1. REPATHA [Suspect]
     Active Substance: EVOLOCUMAB
     Indication: BLOOD CHOLESTEROL ABNORMAL
     Dosage: 420 MILLIGRAM (3.5 ML), QMO
     Route: 058
     Dates: start: 20171122, end: 20200518

REACTIONS (3)
  - Weight increased [Recovering/Resolving]
  - Atrial fibrillation [Unknown]
  - Alopecia [Recovering/Resolving]
